FAERS Safety Report 23334044 (Version 2)
Quarter: 2024Q2

REPORT INFORMATION
  Report Type: Report from Study
  Country: JP (occurrence: JP)
  Receive Date: 20231223
  Receipt Date: 20240418
  Transmission Date: 20240716
  Serious: Yes (Hospitalization, Other)
  Sender: FDA-Public Use
  Company Number: JP-JAZZ PHARMACEUTICALS-2023-JP-025197

PATIENT
  Age: 51 Year
  Sex: Female
  Weight: 67.9 kg

DRUGS (2)
  1. DEFITELIO [Suspect]
     Active Substance: DEFIBROTIDE SODIUM
     Indication: Venoocclusive liver disease
     Dosage: 25 MICROGRAM/SQ. METER, QD
     Route: 042
     Dates: start: 20221113, end: 20221125
  2. DEFITELIO [Suspect]
     Active Substance: DEFIBROTIDE SODIUM
     Dosage: 25 MICROGRAM/SQ. METER, QD
     Route: 042
     Dates: start: 20230118, end: 20230118

REACTIONS (4)
  - Anaphylactic reaction [Recovered/Resolved]
  - Hypotension [Recovered/Resolved]
  - Haematochezia [Recovered/Resolved]
  - Epistaxis [Recovered/Resolved]

NARRATIVE: CASE EVENT DATE: 20221116
